FAERS Safety Report 17806349 (Version 1)
Quarter: 2020Q2

REPORT INFORMATION
  Report Type: Report from Study
  Country: ES (occurrence: ES)
  Receive Date: 20200520
  Receipt Date: 20200520
  Transmission Date: 20200714
  Serious: Yes (Hospitalization)
  Sender: FDA-Public Use
  Company Number: ES-TEVA-2020-ES-1237150

PATIENT
  Age: 54 Year
  Sex: Female

DRUGS (5)
  1. ALPRAZOLAM (99A) [Concomitant]
     Active Substance: ALPRAZOLAM
     Route: 048
  2. PARACETAMOL (12A) [Concomitant]
     Active Substance: ACETAMINOPHEN
     Indication: RENAL COLIC
     Route: 048
     Dates: start: 20170413
  3. IBUPROFENO (1769A) [Interacting]
     Active Substance: IBUPROFEN
     Indication: RENAL COLIC
     Route: 048
     Dates: start: 20170413, end: 20170428
  4. METAMIZOL (111A) [Interacting]
     Active Substance: METAMIZOL SODIUM
     Indication: RENAL COLIC
     Route: 048
     Dates: start: 20170424, end: 20170428
  5. PAROXETINA (2586A) [Suspect]
     Active Substance: PAROXETINE
     Route: 048
     Dates: start: 20110117

REACTIONS (2)
  - Upper gastrointestinal haemorrhage [Recovered/Resolved]
  - Drug interaction [Unknown]

NARRATIVE: CASE EVENT DATE: 20170428
